FAERS Safety Report 5087558-7 (Version None)
Quarter: 2006Q3

REPORT INFORMATION
  Report Type: 
  Country: None (occurrence: None)
  Receive Date: 20060824
  Receipt Date: 20060629
  Transmission Date: 20061208
  Serious: Yes (Other)
  Sender: FDA-Public Use
  Company Number: DE-GLAXOSMITHKLINE-D0050171A

PATIENT
  Age: 55 Year
  Sex: Female
  Weight: 45 kg

DRUGS (2)
  1. AUGMENTIN '125' [Suspect]
     Indication: TONSILLITIS
     Dosage: 1TAB THREE TIMES PER DAY
     Route: 048
     Dates: start: 20060511, end: 20060517
  2. OESTRADIOL [Suspect]
     Indication: HORMONE REPLACEMENT THERAPY
     Dosage: 37.5UG PER DAY
     Route: 062
     Dates: start: 20060301, end: 20060614

REACTIONS (16)
  - APTYALISM [None]
  - ASTHENIA [None]
  - BURNING SENSATION MUCOSAL [None]
  - DIZZINESS [None]
  - DRY MOUTH [None]
  - DYSGEUSIA [None]
  - DYSPEPSIA [None]
  - DYSPHAGIA [None]
  - FATIGUE [None]
  - GLOSSODYNIA [None]
  - HEADACHE [None]
  - HEPATIC ENZYME INCREASED [None]
  - HEPATITIS [None]
  - HYPOAESTHESIA [None]
  - MALAISE [None]
  - WEIGHT DECREASED [None]
